FAERS Safety Report 7270759-7 (Version None)
Quarter: 2011Q1

REPORT INFORMATION
  Report Type: 
  Country: None (occurrence: None)
  Receive Date: 20110202
  Receipt Date: 20110120
  Transmission Date: 20110831
  Serious: Yes (Hospitalization)
  Sender: FDA-Public Use
  Company Number: US-ELI_LILLY_AND_COMPANY-US201002002005

PATIENT
  Sex: Female

DRUGS (3)
  1. MOBIC [Concomitant]
     Indication: PAIN
  2. TYLENOL (CAPLET) [Concomitant]
     Indication: PAIN
  3. FORTEO [Suspect]
     Indication: OSTEOPOROSIS
     Dosage: 20 UG, DAILY (1/D)
     Dates: start: 20090601

REACTIONS (3)
  - PAIN IN EXTREMITY [None]
  - SURGERY [None]
  - MYALGIA [None]
